FAERS Safety Report 18672499 (Version 1)
Quarter: 2020Q4

REPORT INFORMATION
  Report Type: Other
  Country: CA (occurrence: CA)
  Receive Date: 20201229
  Receipt Date: 20201229
  Transmission Date: 20210114
  Serious: Yes (Death)
  Sender: FDA-Public Use
  Company Number: CA-CELLTRION INC.-2020CA034430

PATIENT

DRUGS (1)
  1. RITUXIMAB (UNKNOWN) [Suspect]
     Active Substance: RITUXIMAB
     Indication: WARM TYPE HAEMOLYTIC ANAEMIA
     Dosage: UNK
     Route: 042

REACTIONS (2)
  - Off label use [Unknown]
  - Ovarian cancer [Fatal]
